FAERS Safety Report 7801406-0 (Version None)
Quarter: 2011Q4

REPORT INFORMATION
  Report Type: 
  Country: None (occurrence: None)
  Receive Date: 20111005
  Receipt Date: 20110921
  Transmission Date: 20120403
  Serious: Yes (Other)
  Sender: FDA-Public Use
  Company Number: 2011-410

PATIENT
  Age: 62 Year
  Sex: Male

DRUGS (2)
  1. DILAUDID [Suspect]
     Dosage: 0.17 MG, ONCE/HOUR, INTRATHECAL
     Route: 037
  2. PRIALT [Suspect]
     Dosage: 0.05 UG, ONCE/HOUR, INTRATHECAL
     Route: 037
     Dates: start: 20110916, end: 20110920

REACTIONS (1)
  - SELF-INJURIOUS IDEATION [None]
